FAERS Safety Report 9417995 (Version 1)
Quarter: 2013Q3

REPORT INFORMATION
  Report Type: Spontaneous
  Country: US (occurrence: US)
  Receive Date: 20130724
  Receipt Date: 20130724
  Transmission Date: 20140515
  Serious: No
  Sender: FDA-Public Use
  Company Number: US-B.I. PHARMACEUTICALS,INC./RIDGEFIELD-2013-BI-21800BP

PATIENT
  Age: 63 Year
  Sex: Male

DRUGS (2)
  1. COMBIVENT [Suspect]
     Indication: ASTHMA
     Dosage: STRENGTH: 20 MCG/100 MCG; DOSE:240 MCG/120 MCG
     Route: 055
     Dates: start: 20130615
  2. HIZENTRA [Concomitant]
     Indication: HYPOGAMMAGLOBULINAEMIA
     Route: 058
     Dates: start: 2011

REACTIONS (5)
  - Hand fracture [Recovered/Resolved]
  - Fall [Recovered/Resolved]
  - Off label use [Unknown]
  - Overdose [Unknown]
  - Product quality issue [Unknown]
